FAERS Safety Report 6137421-5 (Version None)
Quarter: 2009Q1

REPORT INFORMATION
  Report Type: 
  Country: None (occurrence: None)
  Receive Date: 20090330
  Receipt Date: 20090318
  Transmission Date: 20090719
  Serious: Yes (Hospitalization)
  Sender: FDA-Public Use
  Company Number: JP-GENENTECH-275476

PATIENT
  Age: 82 Year
  Sex: Female

DRUGS (1)
  1. AVASTIN [Suspect]
     Indication: CHOROIDAL NEOVASCULARISATION
     Dosage: 1.25 MG, UNK
     Route: 031
     Dates: start: 20081219, end: 20081219

REACTIONS (1)
  - VITREOUS OPACITIES [None]
